FAERS Safety Report 9335596 (Version 2)
Quarter: 2013Q4

REPORT INFORMATION
  Report Type: Spontaneous
  Country: US (occurrence: US)
  Receive Date: 20130605
  Receipt Date: 20131030
  Transmission Date: 20140711
  Serious: Yes (Hospitalization, Other)
  Sender: FDA-Public Use
  Company Number: US-SANOFI-AVENTIS-2013SA052707

PATIENT
  Age: 36 Year
  Sex: Female

DRUGS (5)
  1. LOVENOX [Suspect]
     Indication: DEEP VEIN THROMBOSIS
     Dates: start: 20130425
  2. LOVENOX [Suspect]
     Indication: DEEP VEIN THROMBOSIS
     Route: 065
     Dates: start: 20130509
  3. ENOXAPARIN SODIUM - WINTHROP [Suspect]
     Indication: DEEP VEIN THROMBOSIS
     Route: 065
     Dates: end: 20131022
  4. COUMADIN [Suspect]
     Route: 065
  5. RIFAXIMIN [Concomitant]

REACTIONS (10)
  - Adverse event [Unknown]
  - Short-bowel syndrome [Not Recovered/Not Resolved]
  - Malabsorption [Not Recovered/Not Resolved]
  - Venous occlusion [Not Recovered/Not Resolved]
  - Scar [Not Recovered/Not Resolved]
  - Diarrhoea [Not Recovered/Not Resolved]
  - Diarrhoea [Not Recovered/Not Resolved]
  - Product substitution issue [Unknown]
  - Injection site pain [Not Recovered/Not Resolved]
  - Injection site bruising [Not Recovered/Not Resolved]
